FAERS Safety Report 21773940 (Version 2)
Quarter: 2023Q1

REPORT INFORMATION
  Report Type: Report from Study
  Country: US (occurrence: US)
  Receive Date: 20221223
  Receipt Date: 20230329
  Transmission Date: 20230418
  Serious: No
  Sender: FDA-Public Use
  Company Number: US-ABBVIE-4241864

PATIENT
  Age: 13 Year
  Sex: Male
  Weight: 61.234 kg

DRUGS (3)
  1. HUMIRA [Suspect]
     Active Substance: ADALIMUMAB
     Indication: Crohn^s disease
     Dosage: CITRATE FREE, FORM STRENGTH 40 MG
     Route: 058
     Dates: start: 20200101, end: 202112
  2. HUMIRA [Suspect]
     Active Substance: ADALIMUMAB
     Dosage: CITRATE FREE,  FORM STRENGTH 40 MG
     Route: 058
     Dates: start: 202201
  3. VITAMIN D [Concomitant]
     Active Substance: VITAMIN D NOS
     Indication: Product used for unknown indication

REACTIONS (5)
  - Dysbiosis [Recovering/Resolving]
  - Drug level decreased [Recovering/Resolving]
  - Crohn^s disease [Recovered/Resolved]
  - Weight decreased [Unknown]
  - Night sweats [Unknown]

NARRATIVE: CASE EVENT DATE: 20211101
